FAERS Safety Report 8002273 (Version 2)
Quarter: 2020Q3

REPORT INFORMATION
  Report Type: Report from Study
  Country: US (occurrence: US)
  Receive Date: 20110622
  Receipt Date: 20110622
  Transmission Date: 20201104
  Serious: Yes (Death, Hospitalization)
  Sender: FDA-Public Use
  Company Number: US-ROCHE-784529

PATIENT
  Age: 34 Year

DRUGS (2)
  1. BEVACIZUMAB. [Suspect]
     Active Substance: BEVACIZUMAB
     Dosage: OVER 90?30 MIN ON DAY 1 AND 15
     Route: 042
     Dates: start: 20100525
  2. CEDIRANIB. [Suspect]
     Active Substance: CEDIRANIB
     Dosage: ON DAYS 1?21
     Route: 048
     Dates: start: 20100525

REACTIONS (3)
  - Respiratory failure [Fatal]
  - Musculoskeletal chest pain [Unknown]
  - Back pain [Unknown]

NARRATIVE: CASE EVENT DATE: 20101112
